FAERS Safety Report 18050113 (Version 1)
Quarter: 2020Q3

REPORT INFORMATION
  Report Type: Report from Study
  Country: US (occurrence: US)
  Receive Date: 20200721
  Receipt Date: 20200721
  Transmission Date: 20201103
  Serious: Yes (Hospitalization)
  Sender: FDA-Public Use
  Company Number: US-PFIZER INC-2020275463

PATIENT
  Age: 52 Year
  Sex: Female
  Weight: 65.9 kg

DRUGS (7)
  1. COMPAZINE [Concomitant]
     Active Substance: PROCHLORPERAZINE MALEATE
     Dosage: UNK
     Dates: start: 2018
  2. ELIQUIS [Concomitant]
     Active Substance: APIXABAN
     Dosage: UNK
     Dates: start: 201903
  3. TAPAZOLE [Suspect]
     Active Substance: METHIMAZOLE
     Indication: HYPERTHYROIDISM
     Dosage: 20 MG
     Dates: start: 20190812
  4. TAPAZOLE [Suspect]
     Active Substance: METHIMAZOLE
     Indication: BASEDOW^S DISEASE
     Dosage: 5 MG
     Dates: start: 201804, end: 20190812
  5. PROPRANOLOL [Concomitant]
     Active Substance: PROPRANOLOL HYDROCHLORIDE
     Dosage: UNK
     Dates: start: 201712
  6. TAPAZOLE [Suspect]
     Active Substance: METHIMAZOLE
     Dosage: 40 MG
     Dates: start: 20190820
  7. MGD 013 [Suspect]
     Active Substance: TEBOTELIMAB
     Indication: CERVIX CANCER METASTATIC
     Dosage: 600 MG
     Route: 042
     Dates: start: 20190715

REACTIONS (2)
  - Hypotension [Recovered/Resolved]
  - Hyponatraemia [Recovered/Resolved]

NARRATIVE: CASE EVENT DATE: 20190819
